FAERS Safety Report 8323196 (Version 4)
Quarter: 2012Q4

REPORT INFORMATION
  Report Type: 
  Country: US (occurrence: US)
  Receive Date: 20120105
  Receipt Date: 20121114
  Transmission Date: 20130627
  Serious: Yes (Other)
  Sender: FDA-Public Use
  Company Number: US-AMGEN-USASP2012000333

PATIENT
  Sex: Female
  Weight: 54.83 kg

DRUGS (2)
  1. ENBREL [Suspect]
     Indication: PSORIASIS
     Dosage: 50 mg, qwk
     Route: 058
     Dates: start: 20060413, end: 20111101
  2. HUMIRA [Concomitant]
     Dosage: UNK
     Dates: start: 201111

REACTIONS (2)
  - Abortion spontaneous [Unknown]
  - Blighted ovum [Unknown]
